FAERS Safety Report 19837091 (Version 1)
Quarter: 2021Q3

REPORT INFORMATION
  Report Type: Report from Study
  Country: US (occurrence: US)
  Receive Date: 20210915
  Receipt Date: 20210915
  Transmission Date: 20211014
  Serious: Yes (Hospitalization, Other)
  Sender: FDA-Public Use
  Company Number: US-EXELIXIS-XL18421044040

PATIENT

DRUGS (1)
  1. XL184 [Suspect]
     Active Substance: CABOZANTINIB
     Indication: NON-SMALL CELL LUNG CANCER
     Dosage: 60 MG, QD
     Route: 048
     Dates: start: 20210609, end: 20210709

REACTIONS (10)
  - Leukocytosis [Recovering/Resolving]
  - Alanine aminotransferase increased [Recovering/Resolving]
  - Fatigue [Recovering/Resolving]
  - Urinary tract infection [Recovering/Resolving]
  - Hypotension [Recovered/Resolved]
  - Back pain [Recovering/Resolving]
  - Abdominal pain [Recovering/Resolving]
  - Diarrhoea [Recovered/Resolved]
  - Colitis [Recovering/Resolving]
  - Dehydration [Recovering/Resolving]

NARRATIVE: CASE EVENT DATE: 20210712
